FAERS Safety Report 14044511 (Version 1)
Quarter: 2017Q4

REPORT INFORMATION
  Report Type: Spontaneous
  Country: US (occurrence: US)
  Receive Date: 20171005
  Receipt Date: 20171005
  Transmission Date: 20180321
  Serious: Yes (Disabling)
  Sender: FDA-Public Use
  Company Number: None

PATIENT
  Sex: Female
  Weight: 105.75 kg

DRUGS (18)
  1. CRANBERRY. [Concomitant]
     Active Substance: CRANBERRY
  2. VITAMIN D3 [Concomitant]
     Active Substance: CHOLECALCIFEROL
  3. MULTI VITAMIN/ MULTI MINERAL FOR ADULTS 50+ [Concomitant]
  4. HUMALOG (SLIDING SCALE) [Concomitant]
  5. CLOPIDOGREL [Concomitant]
     Active Substance: CLOPIDOGREL BISULFATE
  6. ULTIMATE FLORA PROBIOTIC FOR WOMEN [Concomitant]
  7. CPAP [Concomitant]
     Active Substance: DEVICE
  8. LANTUS SOLOSTAR [Concomitant]
     Active Substance: INSULIN GLARGINE
  9. TART CHERRY W TUMERIC [Concomitant]
  10. TUMERIC CURCUMIN [Concomitant]
  11. ALPHA LIPOIC ACID [Concomitant]
     Active Substance: .ALPHA.-LIPOIC ACID
  12. GLUCOSAMINE/CHONDROITIN/MSM [Concomitant]
  13. ZYRTEC [Concomitant]
     Active Substance: CETIRIZINE HYDROCHLORIDE
  14. ADVIL [Concomitant]
     Active Substance: IBUPROFEN
  15. SUPER B COMPLEX [Concomitant]
     Active Substance: CYANOCOBALAMIN\DEXPANTHENOL\NIACINAMIDE\PYRIDOXINE HYDROCHLORIDE\RIBOFLAVIN 5^-PHOSPHATE SODIUM\THIAMINE HYDROCHLORIDE\VITAMIN B COMPLEX
  16. ATENOLOL 50MG TABLET [Suspect]
     Active Substance: ATENOLOL
     Indication: HYPERTENSION
     Dosage: ?          QUANTITY:180 TABLET(S);?
     Route: 048
     Dates: start: 20170828, end: 20170922
  17. CALCIUM [Concomitant]
     Active Substance: CALCIUM
  18. NIACIN. [Concomitant]
     Active Substance: NIACIN

REACTIONS (3)
  - Musculoskeletal pain [None]
  - Back pain [None]
  - Pain in extremity [None]

NARRATIVE: CASE EVENT DATE: 20170828
